FAERS Safety Report 6732589-1 (Version None)
Quarter: 2010Q2

REPORT INFORMATION
  Report Type: 
  Country: None (occurrence: None)
  Receive Date: 20100519
  Receipt Date: 20100506
  Transmission Date: 20101027
  Serious: Yes (Other)
  Sender: FDA-Public Use
  Company Number: PHHY2010CL29590

PATIENT
  Sex: Female

DRUGS (1)
  1. TAREG [Suspect]
     Dosage: UNK

REACTIONS (2)
  - CARDIAC DISORDER [None]
  - GASTRIC DISORDER [None]
